FAERS Safety Report 7506751-4 (Version None)
Quarter: 2011Q2

REPORT INFORMATION
  Report Type: 
  Country: None (occurrence: None)
  Receive Date: 20110415
  Receipt Date: 20100419
  Transmission Date: 20111010
  Serious: Yes (Other)
  Sender: FDA-Public Use
  Company Number: 10-158

PATIENT
  Age: 43 Year
  Sex: Female

DRUGS (2)
  1. ALEVE [Suspect]
     Indication: HEADACHE
     Dosage: 1 CAPSULE, DAILY, ORAL
     Route: 048
     Dates: start: 20100403
  2. MULTI-VITAMIN [Concomitant]

REACTIONS (3)
  - OESOPHAGEAL ULCER [None]
  - PAIN [None]
  - FOREIGN BODY [None]
